FAERS Safety Report 19095214 (Version 2)
Quarter: 2024Q1

REPORT INFORMATION
  Report Type: Report from Study
  Country: CZ (occurrence: CZ)
  Receive Date: 20210405
  Receipt Date: 20240312
  Transmission Date: 20240410
  Serious: Yes (Other)
  Sender: FDA-Public Use
  Company Number: CZ-CELLTRION INC.-2021CZ004356

PATIENT

DRUGS (4)
  1. RITUXIMAB [Suspect]
     Active Substance: RITUXIMAB
     Indication: Product used for unknown indication
     Dosage: 375 MG/M2, CYCLE 1 (CYCLE 2 RECEIVED ON 18FEB2020) (CYCLE 3 RECEIVED ON 10MAR2020)
     Route: 065
     Dates: start: 20200128, end: 20200513
  2. POLATUZUMAB VEDOTIN [Suspect]
     Active Substance: POLATUZUMAB VEDOTIN
     Indication: Product used for unknown indication
     Dosage: 1.8 MG/KG, CYCLE 1 (CYCLE 2 RECEIVED ON 18FEB2020)
     Route: 065
     Dates: start: 20200128
  3. POLATUZUMAB VEDOTIN [Suspect]
     Active Substance: POLATUZUMAB VEDOTIN
     Dosage: 1.4 MG/KG CYCLE 3
     Route: 065
     Dates: start: 20200310, end: 20200513
  4. BENDAMUSTINE [Suspect]
     Active Substance: BENDAMUSTINE
     Indication: Product used for unknown indication
     Dosage: 70 MG/M2, CYCLE 1 (CYCLE 2 RECEIVED ON 18FEB2020) (CYCLE 3 RECEIVED ON 10MAR2020)
     Route: 065
     Dates: start: 20200128, end: 20200513

REACTIONS (1)
  - Polyneuropathy [Unknown]
